FAERS Safety Report 5971649-X (Version None)
Quarter: 2008Q4

REPORT INFORMATION
  Report Type: 
  Country: None (occurrence: None)
  Receive Date: 20081126
  Receipt Date: 20081126
  Transmission Date: 20090506
  Serious: No
  Sender: FDA-Public Use
  Company Number: None

PATIENT
  Age: 51 Year
  Sex: Male
  Weight: 122.4712 kg

DRUGS (1)
  1. PROVENTIL [Suspect]
     Indication: ASTHMA
     Dosage: TWO PUFFS TWICE PER DAY PO
     Route: 048
     Dates: start: 20080901, end: 20081125

REACTIONS (2)
  - OESOPHAGEAL CANDIDIASIS [None]
  - OESOPHAGEAL SPASM [None]
